FAERS Safety Report 23409365 (Version 1)
Quarter: 2024Q1

REPORT INFORMATION
  Report Type: Spontaneous
  Country: US (occurrence: None)
  Receive Date: 20240116
  Receipt Date: 20240116
  Transmission Date: 20240410
  Serious: No
  Sender: FDA-Public Use
  Company Number: None

PATIENT
  Sex: Male

DRUGS (5)
  1. CABENUVA [Suspect]
     Active Substance: CABOTEGRAVIR\RILPIVIRINE
     Indication: HIV infection
     Dosage: OTHER FREQUENCY : EVERY 2 MONTHS;?
     Route: 058
     Dates: start: 202010
  2. neodex [Concomitant]
  3. OFLOXACIN [Concomitant]
  4. penicillin [Concomitant]
  5. ERYTHROMYCIN [Concomitant]
     Active Substance: ERYTHROMYCIN

REACTIONS (5)
  - Ocular hyperaemia [None]
  - Swelling face [None]
  - Eye swelling [None]
  - Eyelid margin crusting [None]
  - Eye discharge [None]
